FAERS Safety Report 6742178-0 (Version None)
Quarter: 2010Q2

REPORT INFORMATION
  Report Type: 
  Country: None (occurrence: None)
  Receive Date: 20100524
  Receipt Date: 20100518
  Transmission Date: 20101027
  Serious: Yes (Other)
  Sender: FDA-Public Use
  Company Number: 2010SP027844

PATIENT
  Sex: Male

DRUGS (1)
  1. DESLORATADINE [Suspect]
     Indication: RHINITIS
     Dosage: 5 MG;BID;PO
     Route: 048
     Dates: start: 20100501

REACTIONS (1)
  - ANAPHYLACTIC SHOCK [None]
